FAERS Safety Report 17466685 (Version 2)
Quarter: 2020Q1

REPORT INFORMATION
  Report Type: Spontaneous
  Country: US (occurrence: US)
  Receive Date: 20200227
  Receipt Date: 20200328
  Transmission Date: 20200409
  Serious: No
  Sender: FDA-Public Use
  Company Number: US-AMGEN-USASP2020032695

PATIENT
  Age: 58 Year
  Sex: Female

DRUGS (1)
  1. NEUPOGEN [Suspect]
     Active Substance: FILGRASTIM
     Indication: NEUTROPHIL COUNT DECREASED
     Dosage: 480 MICROGRAM, QWK
     Route: 065
     Dates: start: 20200221

REACTIONS (2)
  - Device use error [Unknown]
  - Needle issue [Unknown]

NARRATIVE: CASE EVENT DATE: 20200221
